FAERS Safety Report 7120493-9 (Version None)
Quarter: 2010Q4

REPORT INFORMATION
  Report Type: 
  Country: None (occurrence: None)
  Receive Date: 20101124
  Receipt Date: 20101111
  Transmission Date: 20110411
  Serious: Yes (Other)
  Sender: FDA-Public Use
  Company Number: US-RANBAXY-2010US-39550

PATIENT

DRUGS (12)
  1. VERAPAMIL TABLETS BP 80MG [Suspect]
     Indication: TACHYCARDIA FOETAL
     Dosage: 80 MG, TID
     Route: 048
  2. VERAPAMIL TABLETS BP 80MG [Suspect]
     Indication: HYDROPS FOETALIS
  3. VERAPAMIL [Suspect]
     Indication: TACHYCARDIA FOETAL
     Dosage: 120 MG, QD
     Route: 048
  4. VERAPAMIL [Suspect]
     Indication: HYDROPS FOETALIS
  5. DIGOXIN [Suspect]
     Indication: PRODUCT USED FOR UNKNOWN INDICATION
     Dosage: FIRST 24 HRS: 1.25 MG TOTAL
     Route: 065
  6. DIGOXIN [Suspect]
     Dosage: 0.5 MG, BID
     Route: 048
  7. DIGOXIN [Suspect]
     Dosage: 0.875 MG, QD
     Route: 048
  8. DIGOXIN [Suspect]
     Dosage: 0.75 TO 1.0 MG/24 HRS
     Route: 065
  9. DIGOXIN [Suspect]
     Dosage: 0.5 MG, 1 IN 24 HR
     Route: 065
  10. DIGOXIN [Suspect]
     Dosage: 0.625 MG, 4 IN 1 D
     Route: 065
  11. PROPRANOLOL [Concomitant]
     Indication: TACHYCARDIA FOETAL
     Dosage: UNK, UNK
     Route: 048
  12. PROPRANOLOL [Concomitant]
     Indication: HYDROPS FOETALIS

REACTIONS (3)
  - DRUG EXPOSURE DURING PREGNANCY [None]
  - DRUG INTERACTION [None]
  - INTRA-UTERINE DEATH [None]
